FAERS Safety Report 11224220 (Version 2)
Quarter: 2015Q3

REPORT INFORMATION
  Report Type: Report from Study
  Country: NL (occurrence: NL)
  Receive Date: 20150629
  Receipt Date: 20150717
  Transmission Date: 20151125
  Serious: Yes (Hospitalization)
  Sender: FDA-Public Use
  Company Number: NL-AMGEN-NLDSL2015055094

PATIENT
  Age: 65 Year
  Sex: Female

DRUGS (1)
  1. ARANESP [Suspect]
     Active Substance: DARBEPOETIN ALFA
     Indication: ANAEMIA
     Dosage: 1 ML (500MCG/ML) Q3WK
     Route: 058

REACTIONS (6)
  - Pain [Not Recovered/Not Resolved]
  - Facial pain [Not Recovered/Not Resolved]
  - Blood glucose decreased [Unknown]
  - Blood sodium increased [Unknown]
  - Dehydration [Not Recovered/Not Resolved]
  - Blood potassium increased [Unknown]

NARRATIVE: CASE EVENT DATE: 20150519
